FAERS Safety Report 7672674 (Version 5)
Quarter: 2013Q3

REPORT INFORMATION
  Report Type: Spontaneous
  Country: US (occurrence: US)
  Receive Date: 20101117
  Receipt Date: 20130813
  Transmission Date: 20140515
  Serious: Yes (Hospitalization, Other)
  Sender: FDA-Public Use
  Company Number: US-ROCHE-718945

PATIENT
  Age: 40 Year
  Sex: Female
  Weight: 62.1 kg

DRUGS (13)
  1. ACCUTANE [Suspect]
     Indication: ACNE
     Route: 048
     Dates: start: 199101, end: 199107
  2. ACCUTANE [Suspect]
     Dosage: ONE CAPSULE EVERY DAY ALTERNATING EVERY OTHER DAY WITH ONE CAPSULE TWICE A DAY
     Route: 048
     Dates: start: 19990908, end: 20000313
  3. ACCUTANE [Suspect]
     Route: 048
  4. ACCUTANE [Suspect]
     Route: 048
  5. ADVAIR DISKUS [Concomitant]
     Dosage: 500/50
     Route: 065
  6. CLIMARA [Concomitant]
  7. DIAZEPAM [Concomitant]
     Route: 065
  8. FLOVENT [Concomitant]
     Dosage: DOSE: 220 MCG/A
     Route: 065
  9. ACETAMINOPHEN\HYDROCODONE [Concomitant]
  10. MAXALT [Concomitant]
  11. METHADONE HCL [Concomitant]
  12. SINGULAIR [Concomitant]
  13. TRAZODONE HCL [Concomitant]

REACTIONS (17)
  - Depression [Unknown]
  - Colitis ulcerative [Unknown]
  - Gastrointestinal injury [Unknown]
  - Inflammatory bowel disease [Unknown]
  - Intestinal haemorrhage [Unknown]
  - Intestinal obstruction [Unknown]
  - Anal fissure [Unknown]
  - Insomnia [Unknown]
  - Anaemia [Unknown]
  - Haemorrhoids [Unknown]
  - Rhinitis [Unknown]
  - Arthritis [Unknown]
  - Milia [Unknown]
  - Gastrooesophageal reflux disease [Unknown]
  - Irritable bowel syndrome [Unknown]
  - Lip dry [Unknown]
  - Acne [Unknown]
